FAERS Safety Report 6815472-2 (Version None)
Quarter: 2010Q3

REPORT INFORMATION
  Report Type: 
  Country: None (occurrence: None)
  Receive Date: 20100702
  Receipt Date: 20100628
  Transmission Date: 20110219
  Serious: No
  Sender: FDA-Public Use
  Company Number: US-CEPHALON-2010003469

PATIENT
  Sex: Female
  Weight: 50 kg

DRUGS (3)
  1. FENTORA [Suspect]
     Indication: MYALGIA
     Route: 002
     Dates: start: 20080101
  2. FENTORA [Suspect]
     Indication: RHEUMATOID ARTHRITIS
  3. FENTANYL [Concomitant]
     Dates: start: 20100101

REACTIONS (1)
  - DRUG PRESCRIBING ERROR [None]
